FAERS Safety Report 10597805 (Version 1)
Quarter: 2014Q4

REPORT INFORMATION
  Report Type: Spontaneous
  Country: PL (occurrence: PL)
  Receive Date: 20141121
  Receipt Date: 20141121
  Transmission Date: 20150529
  Serious: Yes (Death, Life-Threatening, Hospitalization)
  Sender: FDA-Public Use
  Company Number: PL-RANBAXY-2014R1-88148

PATIENT
  Age: 54 Year
  Sex: Male

DRUGS (1)
  1. METFORMIN [Suspect]
     Active Substance: METFORMIN HYDROCHLORIDE
     Indication: PRODUCT USED FOR UNKNOWN INDICATION
     Dosage: 100 DF, SINGLE
     Route: 048

REACTIONS (8)
  - Asthenia [Not Recovered/Not Resolved]
  - Poisoning [Unknown]
  - Nausea [Unknown]
  - Cyanosis [Unknown]
  - Metabolic acidosis [Not Recovered/Not Resolved]
  - Cardiopulmonary failure [Unknown]
  - Multi-organ failure [Fatal]
  - Loss of consciousness [Unknown]
